FAERS Safety Report 9789896 (Version 1)
Quarter: 2013Q4

REPORT INFORMATION
  Report Type: Spontaneous
  Country: FR (occurrence: FR)
  Receive Date: 20131231
  Receipt Date: 20131231
  Transmission Date: 20140711
  Serious: Yes (Hospitalization)
  Sender: FDA-Public Use
  Company Number: FR-JNJFOC-20131215141

PATIENT
  Age: 87 Year
  Sex: Female

DRUGS (6)
  1. XARELTO [Suspect]
     Indication: CEREBROVASCULAR ACCIDENT PROPHYLAXIS
     Route: 048
     Dates: start: 20130927, end: 20131104
  2. XARELTO [Suspect]
     Indication: ATRIAL FIBRILLATION
     Route: 048
     Dates: start: 20130927, end: 20131104
  3. BEFIZAL [Concomitant]
     Route: 065
  4. CARDENSIEL [Concomitant]
     Dosage: 2.5 2/DAY
     Route: 065
  5. INEXIUM [Concomitant]
     Dosage: 40 1/DAY
     Route: 065
  6. NATISPRAY [Concomitant]
     Route: 065

REACTIONS (1)
  - Transient ischaemic attack [Recovered/Resolved]
